FAERS Safety Report 17166144 (Version 1)
Quarter: 2019Q4

REPORT INFORMATION
  Report Type: Spontaneous
  Country: US (occurrence: US)
  Receive Date: 20191217
  Receipt Date: 20191217
  Transmission Date: 20200122
  Serious: No
  Sender: FDA-Public Use
  Company Number: US-SA-2019SA349682

PATIENT
  Sex: Male
  Weight: 74.84 kg

DRUGS (7)
  1. CHANTIX [Concomitant]
     Active Substance: VARENICLINE TARTRATE
     Dosage: 0.5 MG, BID
  2. TRELEGY ELLIPTA [Concomitant]
     Active Substance: FLUTICASONE FUROATE\UMECLIDINIUM BROMIDE\VILANTEROL TRIFENATATE
     Dosage: 1 PUFF DAILY
  3. NAPROXEN. [Concomitant]
     Active Substance: NAPROXEN
     Dosage: 500 MG, PRN
  4. ROSUVASTATIN. [Concomitant]
     Active Substance: ROSUVASTATIN
     Dosage: 40 MG, QD
  5. TRADJENTA [Concomitant]
     Active Substance: LINAGLIPTIN
     Dosage: 5 MG, QD
  6. PLAVIX [Suspect]
     Active Substance: CLOPIDOGREL BISULFATE
     Indication: CORONARY ARTERY BYPASS
     Dosage: 80 MG, QD BY MONTH
     Route: 065
     Dates: start: 19980321
  7. LISINOPRIL. [Concomitant]
     Active Substance: LISINOPRIL
     Dosage: 20 MG, QD

REACTIONS (9)
  - Product availability issue [Unknown]
  - Burning sensation [Unknown]
  - Injury [Unknown]
  - Contusion [Unknown]
  - Angiopathy [Unknown]
  - Inability to afford medication [Unknown]
  - Haemorrhage [Unknown]
  - Malaise [Unknown]
  - Dizziness [Unknown]
